FAERS Safety Report 8525607-1 (Version None)
Quarter: 2012Q3

REPORT INFORMATION
  Report Type: 
  Country: None (occurrence: None)
  Receive Date: 20120720
  Receipt Date: 20120717
  Transmission Date: 20120928
  Serious: Yes (Death, Hospitalization, Disabling, Other)
  Sender: FDA-Public Use
  Company Number: US-009507513-2011SP048235

PATIENT

DRUGS (5)
  1. NUVARING [Suspect]
     Indication: CONTRACEPTION
     Dates: start: 20090501, end: 20091130
  2. MOTRIN [Concomitant]
     Dosage: 800 MG, BID
     Route: 048
  3. K-TAB [Concomitant]
     Dosage: 10 MEQ, QD
     Route: 048
  4. NASACORT AQ [Concomitant]
     Dosage: 1 PUFF EACH NOSTRIL
     Route: 055
  5. HYDROCHLOROTHIAZIDE [Concomitant]
     Dosage: 25 MG, QD
     Route: 048

REACTIONS (10)
  - PULMONARY EMBOLISM [None]
  - ANAEMIA [None]
  - LOBAR PNEUMONIA [None]
  - HYPERCOAGULATION [None]
  - MUSCLE SPASMS [None]
  - THROMBOSIS [None]
  - BACK PAIN [None]
  - HYPOKALAEMIA [None]
  - PREGNANCY [None]
  - DEVICE EXPULSION [None]
